FAERS Safety Report 21524057 (Version 1)
Quarter: 2022Q4

REPORT INFORMATION
  Report Type: Spontaneous
  Country: CN (occurrence: CN)
  Receive Date: 20221029
  Receipt Date: 20221029
  Transmission Date: 20230113
  Serious: Yes (Other)
  Sender: FDA-Public Use
  Company Number: None

PATIENT
  Age: 58 Year
  Sex: Female
  Weight: 55 kg

DRUGS (7)
  1. CYCLOPHOSPHAMIDE [Suspect]
     Active Substance: CYCLOPHOSPHAMIDE
     Indication: Breast cancer female
     Dosage: 890 MG, QD (DILUTED WITH NORMAL SALINE 45ML) (1ST CHEMOTHERAPY)
     Route: 042
     Dates: start: 20220908, end: 20220908
  2. CYCLOPHOSPHAMIDE [Suspect]
     Active Substance: CYCLOPHOSPHAMIDE
     Indication: Chemotherapy
  3. SODIUM CHLORIDE [Suspect]
     Active Substance: SODIUM CHLORIDE
     Indication: Medication dilution
     Dosage: 45 ML, QD (USED TO DILUTE CYCLOPHOSPHAMIDE 890 MG) (1ST CHEMOTHERAPY)
     Route: 042
     Dates: start: 20220908, end: 20220908
  4. SODIUM CHLORIDE [Suspect]
     Active Substance: SODIUM CHLORIDE
     Dosage: 250 ML, QD (USED TO DILUTE DOCETAXEL 110 MG) (1ST CHEMOTHERAPY)
     Route: 041
     Dates: start: 20220908, end: 20220908
  5. DOCETAXEL [Suspect]
     Active Substance: DOCETAXEL
     Indication: Breast cancer female
     Dosage: 110 MG, QD (DILUTED WITH NORMAL SALINE 250 ML) (1ST CHEMOTHERAPY)
     Route: 041
     Dates: start: 20220908, end: 20220908
  6. DOCETAXEL [Suspect]
     Active Substance: DOCETAXEL
     Indication: Chemotherapy
  7. AI DUO [Concomitant]
     Indication: Product used for unknown indication
     Dosage: 6 MG (ON DAY 3)
     Route: 058
     Dates: start: 202209

REACTIONS (2)
  - White blood cell count decreased [Recovered/Resolved]
  - Agranulocytosis [Recovered/Resolved]

NARRATIVE: CASE EVENT DATE: 20220913
